FAERS Safety Report 9630808 (Version 1)
Quarter: 2013Q4

REPORT INFORMATION
  Report Type: Spontaneous
  Country: US (occurrence: None)
  Receive Date: 20131015
  Receipt Date: 20131015
  Transmission Date: 20140711
  Serious: Yes (Hospitalization)
  Sender: FDA-Public Use
  Company Number: 2013ZX000323

PATIENT
  Age: 50 Year
  Sex: Female

DRUGS (7)
  1. SUMAVEL DOSEPRO [Suspect]
     Indication: MIGRAINE
     Dosage: 1 IN 1 AS REQUIRED
  2. IMITREX [Suspect]
     Indication: MIGRAINE
     Dosage: 1 IN 1 AS REQUIRED
  3. IMITREX [Suspect]
     Indication: MIGRAINE
     Dosage: 1 IN 1 AS REQUIRED
     Route: 045
  4. TOPAMAX (TOPIRAMATE) [Concomitant]
  5. LORTAB (VICODIN) [Concomitant]
  6. SYNTHROID (LEVOTHYROXINE SODIUM) [Concomitant]
  7. ZOLOFT (SERTRALINE HYDROCHLORINE) [Concomitant]

REACTIONS (9)
  - Overdose [None]
  - Impaired gastric emptying [None]
  - Dehydration [None]
  - Nausea [None]
  - Vomiting [None]
  - Diarrhoea [None]
  - Abdominal pain upper [None]
  - Decreased appetite [None]
  - Aphagia [None]
